FAERS Safety Report 24832192 (Version 1)
Quarter: 2025Q1

REPORT INFORMATION
  Report Type: Spontaneous
  Country: US (occurrence: None)
  Receive Date: 20250110
  Receipt Date: 20250110
  Transmission Date: 20250409
  Serious: Yes (Other)
  Sender: FDA-CTU
  Company Number: None

PATIENT
  Age: 43 Year
  Sex: Male
  Weight: 106.2 kg

DRUGS (1)
  1. VITAMIN D2 [Suspect]
     Active Substance: ERGOCALCIFEROL
     Indication: Vitamin D decreased
     Route: 048
     Dates: start: 20240109, end: 20240109

REACTIONS (2)
  - Tachyphrenia [None]
  - Feeling abnormal [None]

NARRATIVE: CASE EVENT DATE: 20240109
